FAERS Safety Report 24817075 (Version 4)
Quarter: 2025Q1

REPORT INFORMATION
  Report Type: Report from Study
  Country: GB (occurrence: GB)
  Receive Date: 20250108
  Receipt Date: 20250304
  Transmission Date: 20250408
  Serious: Yes (Other)
  Sender: JOHNSON AND JOHNSON
  Company Number: GB-JNJFOC-20250104516

PATIENT
  Age: 77 Year
  Sex: Male

DRUGS (1)
  1. ERLEADA [Suspect]
     Active Substance: APALUTAMIDE
     Indication: Prostate cancer
     Route: 048
     Dates: start: 20241101

REACTIONS (3)
  - Pulmonary embolism [Recovering/Resolving]
  - Dyspnoea [Recovering/Resolving]
  - Nasopharyngitis [Unknown]

NARRATIVE: CASE EVENT DATE: 20241231
